FAERS Safety Report 4649496-0 (Version None)
Quarter: 2005Q2

REPORT INFORMATION
  Report Type: 
  Country: None (occurrence: None)
  Receive Date: 20050428
  Receipt Date: 20050428
  Transmission Date: 20051028
  Serious: Yes (Hospitalization, Other)
  Sender: FDA-Public Use
  Company Number: None

PATIENT
  Age: 56 Year
  Sex: Male
  Weight: 108.8633 kg

DRUGS (10)
  1. CETUXIMAB: 400MG/M2 W/1; 250 MG/M2; BRISTOL MYERS SQU [Suspect]
     Indication: HEPATIC NEOPLASM MALIGNANT
     Dosage: 860 MG/M2 IV
     Route: 042
     Dates: start: 20050414
  2. SERTRALINE HCL [Concomitant]
  3. PROTONIC [Concomitant]
  4. LACTULOSE [Concomitant]
  5. CALCIUM GLUCONATE [Concomitant]
  6. FLGYL [Concomitant]
  7. ALDRACTONE [Concomitant]
  8. VICODIN [Concomitant]
  9. LASIX [Concomitant]
  10. ASPIRIN [Concomitant]

REACTIONS (1)
  - GASTRIC VARICES HAEMORRHAGE [None]
